FAERS Safety Report 24405626 (Version 3)
Quarter: 2025Q3

REPORT INFORMATION
  Report Type: Report from Study
  Country: US (occurrence: US)
  Receive Date: 20241007
  Receipt Date: 20250809
  Transmission Date: 20251020
  Serious: Yes (Other)
  Sender: ALEXION PHARMACEUTICALS
  Company Number: US-AstraZeneca-CH-00718286A

PATIENT
  Sex: Female

DRUGS (1)
  1. ULTOMIRIS [Suspect]
     Active Substance: RAVULIZUMAB-CWVZ

REACTIONS (11)
  - Loss of consciousness [Unknown]
  - Drug ineffective [Unknown]
  - Neck pain [Unknown]
  - Vomiting [Unknown]
  - Peripheral swelling [Unknown]
  - Joint swelling [Unknown]
  - Head injury [Unknown]
  - Asthenia [Unknown]
  - Fall [Unknown]
  - Diarrhoea [Unknown]
  - Gait disturbance [Unknown]
